FAERS Safety Report 9128170 (Version 2)
Quarter: 2013Q1

REPORT INFORMATION
  Report Type: Spontaneous
  Country: US (occurrence: US)
  Receive Date: 20130125
  Receipt Date: 20130308
  Transmission Date: 20140127
  Serious: Yes (Hospitalization)
  Sender: FDA-Public Use
  Company Number: GXBR2013US000498

PATIENT
  Age: 60 None
  Sex: Female
  Weight: 66.67 kg

DRUGS (9)
  1. TRIAMCINOLONE ACETONIDE [Suspect]
     Indication: ERYTHEMA MULTIFORME
     Dosage: 40 MG, ONCE/SINGLE
     Dates: start: 20101108, end: 20101108
  2. PREDNISONE [Suspect]
     Dosage: UNK MG, UNK
     Dates: start: 20101106
  3. LAMISIL [Suspect]
     Indication: PHOTOSENSITIVITY REACTION
     Dosage: 250 MG, UNK
     Route: 048
     Dates: start: 2010, end: 2010
  4. TRIAMCINOLONE ACETONIDE [Suspect]
     Indication: PHOTOSENSITIVITY REACTION
     Dosage: UNK DF, UNK
     Route: 061
     Dates: start: 20101108, end: 20101111
  5. HYDROCHLOROTHIAZIDE [Concomitant]
     Dosage: UNK DF, UNK
  6. LISINOPRIL [Concomitant]
  7. METOPROLOL [Concomitant]
  8. SYNTHROID [Concomitant]
  9. LOVASTATIN [Concomitant]

REACTIONS (5)
  - Stevens-Johnson syndrome [Recovered/Resolved with Sequelae]
  - Erythema multiforme [Recovered/Resolved with Sequelae]
  - Skin burning sensation [Recovered/Resolved with Sequelae]
  - Malaise [Recovered/Resolved with Sequelae]
  - Skin hypopigmentation [Unknown]
